FAERS Safety Report 9580088 (Version 1)
Quarter: 2013Q3

REPORT INFORMATION
  Report Type: Spontaneous
  Country: US (occurrence: None)
  Receive Date: 20130930
  Receipt Date: 20130930
  Transmission Date: 20140515
  Serious: No
  Sender: FDA-Public Use
  Company Number: None

PATIENT
  Age: 47 Year
  Sex: Male
  Weight: 68.04 kg

DRUGS (1)
  1. LEVOTHYROXINE [Suspect]
     Indication: HYPOTHYROIDISM
     Dosage: 3 PILLS, ONCE DAILY, TAKEN BY MOUTH, 12 YEARS
     Route: 048

REACTIONS (4)
  - Tooth fracture [None]
  - Tooth loss [None]
  - Infection [None]
  - Pain [None]
